FAERS Safety Report 6758915-5 (Version None)
Quarter: 2010Q2

REPORT INFORMATION
  Report Type: 
  Country: None (occurrence: None)
  Receive Date: 20100607
  Receipt Date: 20100531
  Transmission Date: 20101027
  Serious: Yes (Death)
  Sender: FDA-Public Use
  Company Number: PHHY2010JP35350

PATIENT
  Sex: Female

DRUGS (5)
  1. CGS 20267 T30748+TAB [Suspect]
     Indication: BREAST CANCER
     Dosage: 2.5 MG DAILY
     Route: 048
     Dates: start: 20070510
  2. ZOMETA [Concomitant]
     Dosage: UNK
     Dates: start: 20060704
  3. AROMASIN [Concomitant]
     Indication: BREAST CANCER
     Dosage: UNK
     Route: 048
     Dates: start: 20060501, end: 20070501
  4. MOBIC [Concomitant]
     Indication: BREAST CANCER
     Dosage: 10MG
     Route: 048
     Dates: start: 20060704, end: 20080603
  5. NAUZELIN [Concomitant]
     Indication: BREAST CANCER
     Dosage: 30MG
     Route: 048
     Dates: start: 20060704, end: 20080603

REACTIONS (1)
  - DEATH [None]
